FAERS Safety Report 22271934 (Version 1)
Quarter: 2023Q2

REPORT INFORMATION
  Report Type: Spontaneous
  Country: US (occurrence: US)
  Receive Date: 20230502
  Receipt Date: 20230502
  Transmission Date: 20230722
  Serious: Yes (Disabling)
  Sender: FDA-Public Use
  Company Number: US-SANOFI-01592634

PATIENT
  Sex: Female

DRUGS (1)
  1. DUPIXENT [Suspect]
     Active Substance: DUPILUMAB
     Indication: Eczema
     Dosage: 2 DF, 1X
     Route: 065

REACTIONS (4)
  - Impaired work ability [Unknown]
  - Sleep disorder due to general medical condition, insomnia type [Unknown]
  - Skin ulcer [Unknown]
  - Scratch [Unknown]
